FAERS Safety Report 16403504 (Version 1)
Quarter: 2019Q2

REPORT INFORMATION
  Report Type: Spontaneous
  Country: US (occurrence: US)
  Receive Date: 20190607
  Receipt Date: 20190607
  Transmission Date: 20190711
  Serious: Yes (Other)
  Sender: FDA-Public Use
  Company Number: US-TEVA-2019-US-1058212

PATIENT
  Sex: Female

DRUGS (1)
  1. OLMESARTAN W/AMLODIPINE W/HYDROCHLOROTHIAZIDE [Suspect]
     Active Substance: AMLODIPINE\HYDROCHLOROTHIAZIDE\OLMESARTAN
     Indication: HYPERTENSION
     Route: 065

REACTIONS (2)
  - Product substitution issue [Unknown]
  - Breast cancer [Unknown]

NARRATIVE: CASE EVENT DATE: 20180507
